FAERS Safety Report 8743558 (Version 2)
Quarter: 2012Q4

REPORT INFORMATION
  Report Type: 
  Country: US (occurrence: US)
  Receive Date: 20120824
  Receipt Date: 20120920
  Transmission Date: 20130627
  Serious: Yes (Hospitalization, Other)
  Sender: FDA-Public Use
  Company Number: CHPA2012US018150

PATIENT
  Age: 80 Year
  Sex: Female

DRUGS (3)
  1. EXCEDRIN [Suspect]
     Dosage: Unk, Unk
     Route: 048
  2. GAS-X [Suspect]
     Dosage: Unk, Unk
  3. ALLERGY MEDICATION [Concomitant]
     Dosage: Unk, Every 3 weeks

REACTIONS (9)
  - Gastric ulcer [Recovered/Resolved]
  - Abdominal pain upper [Recovered/Resolved]
  - Malaise [Recovered/Resolved]
  - Cataract [Not Recovered/Not Resolved]
  - Eye disorder [Not Recovered/Not Resolved]
  - Vision blurred [Not Recovered/Not Resolved]
  - Abnormal loss of weight [Recovered/Resolved]
  - Erythema [Recovered/Resolved]
  - Fatigue [Recovered/Resolved]
